FAERS Safety Report 7305871-7 (Version None)
Quarter: 2011Q1

REPORT INFORMATION
  Report Type: 
  Country: None (occurrence: None)
  Receive Date: 20110209
  Receipt Date: 20110127
  Transmission Date: 20110831
  Serious: Yes (Hospitalization, Other)
  Sender: FDA-Public Use
  Company Number: WAES 1101USA03255

PATIENT
  Age: 88 Year
  Sex: Female

DRUGS (13)
  1. NEXIUM [Concomitant]
  2. TOPROL-XL [Concomitant]
  3. PRINIVIL [Concomitant]
  4. DOXAZOSIN MESYLATE [Concomitant]
  5. ACCUTANE [Concomitant]
  6. CLEOCIN [Concomitant]
  7. VITAMIN D (UNSPECIFIED) [Concomitant]
  8. LIPITOR [Suspect]
     Indication: BLOOD CHOLESTEROL
     Dosage: PO
     Route: 048
     Dates: start: 20100101
  9. ZOCOR [Suspect]
     Indication: BLOOD CHOLESTEROL
     Dosage: PO
     Route: 048
  10. CYTOTEC [Suspect]
     Dosage: 200 MICROGM/PO
     Route: 048
  11. CALCIUM (UNSPECIFIED) [Concomitant]
  12. FUROSEMIDE [Concomitant]
  13. HYDROXYZINE [Concomitant]

REACTIONS (5)
  - MYALGIA [None]
  - PNEUMONIA [None]
  - DEAFNESS [None]
  - ABDOMINAL DISTENSION [None]
  - PAIN IN EXTREMITY [None]
